FAERS Safety Report 9191487 (Version 6)
Quarter: 2014Q4

REPORT INFORMATION
  Report Type: Spontaneous
  Country: US (occurrence: US)
  Receive Date: 20130326
  Receipt Date: 20141013
  Transmission Date: 20150529
  Serious: Yes (Hospitalization, Disabling, Other)
  Sender: FDA-Public Use
  Company Number: US-009507513-1303USA012237

PATIENT
  Sex: Male

DRUGS (5)
  1. FINASTERIDE. [Suspect]
     Active Substance: FINASTERIDE
     Indication: ALOPECIA
     Dosage: 1 MG, UNK
     Route: 048
     Dates: start: 200810, end: 2010
  2. PROPECIA [Suspect]
     Active Substance: FINASTERIDE
     Indication: ALOPECIA
     Dosage: 1 MG, UNK
     Route: 048
     Dates: start: 200810, end: 2010
  3. PROSCAR [Suspect]
     Active Substance: FINASTERIDE
     Indication: ALOPECIA
     Dosage: 5 MG, UNK
     Route: 048
     Dates: start: 200810, end: 2010
  4. FINASTERIDE. [Suspect]
     Active Substance: FINASTERIDE
     Indication: ALOPECIA
     Dosage: 5 MG, UNK
     Route: 048
     Dates: start: 200810, end: 2010
  5. FINASTERIDE. [Suspect]
     Active Substance: FINASTERIDE
     Indication: ALOPECIA
     Dosage: 5 MG, UNK
     Route: 048
     Dates: start: 200810

REACTIONS (31)
  - Surgery [Unknown]
  - Cognitive disorder [Not Recovered/Not Resolved]
  - Arthralgia [Unknown]
  - Agitation [Unknown]
  - Obsessive-compulsive disorder [Unknown]
  - Anxiety [Not Recovered/Not Resolved]
  - Prostatitis [Unknown]
  - Hypogonadism [Unknown]
  - Erectile dysfunction [Unknown]
  - Suicide attempt [Not Recovered/Not Resolved]
  - Exposure to toxic agent [Unknown]
  - Urogenital disorder [Unknown]
  - Testicular failure [Unknown]
  - Depression [Not Recovered/Not Resolved]
  - Varicocele [Unknown]
  - Accident at work [Unknown]
  - Gastrointestinal disorder [Unknown]
  - Hypertension [Unknown]
  - Chest pain [Unknown]
  - Mental disorder [Unknown]
  - Environmental exposure [Unknown]
  - Back pain [Unknown]
  - Oligospermia [Unknown]
  - Infertility [Unknown]
  - Drug administration error [Unknown]
  - Coma [Recovered/Resolved]
  - Labile blood pressure [Unknown]
  - Musculoskeletal pain [Unknown]
  - Blood testosterone increased [Unknown]
  - Loss of libido [Unknown]
  - Sexual dysfunction [Not Recovered/Not Resolved]

NARRATIVE: CASE EVENT DATE: 2008
